FAERS Safety Report 9246830 (Version 1)
Quarter: 2013Q2

REPORT INFORMATION
  Report Type: Spontaneous
  Country: FR (occurrence: FR)
  Receive Date: 20130422
  Receipt Date: 20130422
  Transmission Date: 20140414
  Serious: Yes (Other)
  Sender: FDA-Public Use
  Company Number: JP-ASTRAZENECA-2013SE25987

PATIENT
  Age: 70 Year
  Sex: Female

DRUGS (2)
  1. COKENZEN [Suspect]
     Indication: HYPERTENSION
     Route: 048
  2. SEROPLEX [Concomitant]
     Indication: PRODUCT USED FOR UNKNOWN INDICATION
     Route: 065

REACTIONS (7)
  - Fall [Unknown]
  - Malaise [Unknown]
  - Hypotension [Unknown]
  - Nausea [Unknown]
  - Erythema [Unknown]
  - Palpitations [Unknown]
  - Abdominal pain upper [Unknown]
